FAERS Safety Report 16491635 (Version 1)
Quarter: 2019Q2

REPORT INFORMATION
  Report Type: Spontaneous
  Country: JP (occurrence: JP)
  Receive Date: 20190628
  Receipt Date: 20190628
  Transmission Date: 20190711
  Serious: Yes (Life-Threatening, Other)
  Sender: FDA-Public Use
  Company Number: JP-AUROBINDO-AUR-APL-2019-037684

PATIENT

DRUGS (5)
  1. MELPHALAN. [Suspect]
     Active Substance: MELPHALAN
     Indication: EWING^S SARCOMA
     Dosage: 70 MILLIGRAM/SQ. METER FOR 2 DAYS
     Route: 065
  2. MELPHALAN. [Suspect]
     Active Substance: MELPHALAN
     Dosage: 180 MILLIGRAM/SQ. METER (CONDITIONING REGIMEN)
     Route: 065
  3. TOPOTECAN [Suspect]
     Active Substance: TOPOTECAN HYDROCHLORIDE
     Indication: EWING^S SARCOMA
     Dosage: 3.5 MILLIGRAM/SQ. METER FOR 5 DAYS
     Route: 065
  4. CYCLOPHOSPHAMIDE. [Suspect]
     Active Substance: CYCLOPHOSPHAMIDE
     Indication: EWING^S SARCOMA
     Dosage: 1000 MILLIGRAM/SQ. METER FOR 3 DAYS
     Route: 065
  5. BUSULFAN. [Suspect]
     Active Substance: BUSULFAN
     Indication: EWING^S SARCOMA
     Dosage: 12.8 MILLIGRAM/SQ. METER
     Route: 065

REACTIONS (9)
  - Haematotoxicity [Unknown]
  - Neutrophil count decreased [Unknown]
  - Anaemia [Unknown]
  - Febrile neutropenia [Unknown]
  - Lymphocyte count decreased [Unknown]
  - White blood cell count decreased [Unknown]
  - Platelet count decreased [Unknown]
  - Off label use [Unknown]
  - Nausea [Unknown]
